FAERS Safety Report 13854585 (Version 1)
Quarter: 2017Q3

REPORT INFORMATION
  Report Type: Spontaneous
  Country: DE (occurrence: DE)
  Receive Date: 20170810
  Receipt Date: 20170810
  Transmission Date: 20171127
  Serious: Yes (Disabling)
  Sender: FDA-Public Use
  Company Number: DE-ASTRAZENECA-2017SE79547

PATIENT
  Age: 57 Year
  Sex: Male
  Weight: 77 kg

DRUGS (5)
  1. CRESTOR [Suspect]
     Active Substance: ROSUVASTATIN CALCIUM
     Dosage: 5 MG, UNKNOWN FREQUENCY, USED FOR A FEW WEEKS
     Route: 048
     Dates: start: 2015
  2. PRAVASTATIN. [Suspect]
     Active Substance: PRAVASTATIN
     Dosage: 10 - 40 MG, USED FOR A FEW WEEKS
     Route: 065
     Dates: start: 2014
  3. SORTIS [Suspect]
     Active Substance: ATORVASTATIN
     Dosage: 40.0MG UNKNOWN
     Route: 065
     Dates: start: 1997, end: 2013
  4. EZETROL [Suspect]
     Active Substance: EZETIMIBE
     Dosage: 10.0MG UNKNOWN
     Route: 065
     Dates: start: 2010, end: 2013
  5. SIMVA [Suspect]
     Active Substance: SIMVASTATIN
     Dosage: 40.0MG UNKNOWN
     Route: 065
     Dates: start: 2013

REACTIONS (4)
  - Rash papular [Recovered/Resolved with Sequelae]
  - Skin disorder [Recovered/Resolved with Sequelae]
  - Scar [Recovered/Resolved with Sequelae]
  - Pruritus [Recovered/Resolved with Sequelae]

NARRATIVE: CASE EVENT DATE: 2013
